FAERS Safety Report 6506141-7 (Version None)
Quarter: 2009Q4

REPORT INFORMATION
  Report Type: 
  Country: None (occurrence: None)
  Receive Date: 20091217
  Receipt Date: 20091217
  Transmission Date: 20100525
  Serious: Yes (Hospitalization)
  Sender: FDA-Public Use
  Company Number: None

PATIENT
  Age: 64 Year
  Sex: Female
  Weight: 73.9 kg

DRUGS (11)
  1. POMALIDOMIDE (CC-4047) [Suspect]
     Indication: CHRONIC GRAFT VERSUS HOST DISEASE
     Dosage: 3MG ONCE DAILY ORAL
     Route: 048
     Dates: start: 20090316, end: 20090321
  2. PREDNISONE [Concomitant]
  3. FK-506 [Concomitant]
  4. CELLCEPT [Concomitant]
  5. DAPSONE [Concomitant]
  6. PEPCID [Concomitant]
  7. PAXIL [Concomitant]
  8. NPH INSULIN [Concomitant]
  9. ZOCOR [Concomitant]
  10. GLUCOPHAGE [Concomitant]
  11. ASPIRIN [Concomitant]

REACTIONS (1)
  - CELLULITIS [None]
